FAERS Safety Report 8584818-X (Version None)
Quarter: 2012Q3

REPORT INFORMATION
  Report Type: 
  Country: None (occurrence: None)
  Receive Date: 20120810
  Receipt Date: 20120801
  Transmission Date: 20120928
  Serious: Yes (Other)
  Sender: FDA-Public Use
  Company Number: CA-JNJFOC-20120801713

PATIENT
  Sex: Female
  Weight: 57 kg

DRUGS (4)
  1. REMICADE [Suspect]
     Indication: CROHN'S DISEASE
     Route: 042
     Dates: start: 20120718
  2. IMURAN [Concomitant]
     Route: 065
  3. VITAMIN B-12 [Concomitant]
     Dosage: POSSIBLY ONCE IN 2 WEEKS
     Route: 065
  4. VITAMIN D [Concomitant]
     Route: 065

REACTIONS (3)
  - PAIN IN JAW [None]
  - PAIN [None]
  - HEADACHE [None]
